FAERS Safety Report 9782150 (Version 3)
Quarter: 2014Q1

REPORT INFORMATION
  Report Type: Spontaneous
  Country: GB (occurrence: GB)
  Receive Date: 20131226
  Receipt Date: 20140326
  Transmission Date: 20141002
  Serious: Yes (Hospitalization)
  Sender: FDA-Public Use
  Company Number: GB-ROCHE-1322819

PATIENT
  Age: 65 Year
  Sex: Male
  Weight: 71 kg

DRUGS (7)
  1. MABTHERA [Suspect]
     Indication: CHRONIC LYMPHOCYTIC LEUKAEMIA
     Route: 042
     Dates: start: 20130409, end: 20130409
  2. MABTHERA [Suspect]
     Route: 042
     Dates: start: 20130523, end: 20130523
  3. MABTHERA [Suspect]
     Route: 042
     Dates: start: 20130620, end: 20130620
  4. BENDAMUSTINE [Concomitant]
     Route: 065
     Dates: start: 20130409, end: 20130409
  5. BENDAMUSTINE [Concomitant]
     Route: 065
     Dates: start: 20130620, end: 20130620
  6. BENDAMUSTINE [Concomitant]
     Route: 065
     Dates: start: 20130523, end: 20130523
  7. MEROPENEM [Concomitant]

REACTIONS (4)
  - Confusional state [Recovered/Resolved]
  - Posterior reversible encephalopathy syndrome [Recovered/Resolved]
  - Candida infection [Recovered/Resolved]
  - Blindness [Recovered/Resolved]
